FAERS Safety Report 13674442 (Version 1)
Quarter: 2017Q2

REPORT INFORMATION
  Report Type: Spontaneous
  Country: JP (occurrence: JP)
  Receive Date: 20170621
  Receipt Date: 20170621
  Transmission Date: 20170830
  Serious: Yes (Other)
  Sender: FDA-Public Use
  Company Number: JP-TEVA-779574ROM

PATIENT
  Age: 74 Year
  Sex: Female

DRUGS (5)
  1. GRANISETRON [Concomitant]
     Active Substance: GRANISETRON
     Indication: PROPHYLAXIS OF NAUSEA AND VOMITING
     Dosage: 3 MG ON DAY 2
     Route: 065
  2. DEXAMETHASONE. [Suspect]
     Active Substance: DEXAMETHASONE
     Indication: PROPHYLAXIS OF NAUSEA AND VOMITING
     Dosage: 6.6MG ON DAYS 2 AND 3
     Route: 065
  3. FLUOROURACIL. [Concomitant]
     Active Substance: FLUOROURACIL
     Indication: HEPATOCELLULAR CARCINOMA
     Dosage: 150 MG/M2/DAY; 5 DAYS CONTINUOUS
     Route: 013
  4. CISPLATIN. [Concomitant]
     Active Substance: CISPLATIN
     Indication: HEPATOCELLULAR CARCINOMA
     Dosage: 30 MG/M2 ON DAY 2
     Route: 013
  5. VALSARTAN. [Concomitant]
     Active Substance: VALSARTAN
     Indication: HYPERTENSION
     Route: 065

REACTIONS (3)
  - Hepatitis C [Recovered/Resolved]
  - Infection reactivation [Recovered/Resolved]
  - Liver injury [Recovered/Resolved]
